FAERS Safety Report 6093165-X (Version None)
Quarter: 2009Q1

REPORT INFORMATION
  Report Type: 
  Country: None (occurrence: None)
  Receive Date: 20090226
  Receipt Date: 20090223
  Transmission Date: 20090719
  Serious: Yes (Hospitalization)
  Sender: FDA-Public Use
  Company Number: JP-ELI_LILLY_AND_COMPANY-JP200809000415

PATIENT
  Sex: Male
  Weight: 68 kg

DRUGS (10)
  1. GEMCITABINE HCL [Suspect]
     Indication: BILE DUCT CANCER STAGE III
     Dosage: 1600 MG, OTHER
     Route: 042
     Dates: start: 20080118, end: 20080411
  2. GEMCITABINE HCL [Suspect]
     Dosage: 1400 MG, OTHER
     Route: 042
     Dates: start: 20080201, end: 20080411
  3. URSO 250 [Concomitant]
     Indication: BILE OUTPUT DECREASED
     Dosage: 600 MG, DAILY (1/D)
     Route: 048
     Dates: start: 20071120, end: 20081028
  4. CYANOCOBALAMIN [Concomitant]
     Indication: PERONEAL NERVE PALSY
     Dosage: 1500 MG, DAILY (1/D)
     Route: 048
     Dates: start: 20071207, end: 20081028
  5. ADALAT [Concomitant]
     Indication: PROPHYLAXIS
     Dosage: 20 MG, DAILY (1/D)
     Route: 048
     Dates: end: 20081028
  6. DIOVAN /01319601/ [Concomitant]
     Indication: PROPHYLAXIS
     Dosage: 80 MG, DAILY (1/D)
     Route: 048
     Dates: end: 20081028
  7. TAKEPRON [Concomitant]
     Indication: PROPHYLAXIS
     Dosage: 15 MG, DAILY (1/D)
     Route: 048
     Dates: end: 20081028
  8. MAINTATE [Concomitant]
     Indication: PROPHYLAXIS
     Dosage: 5 MG, DAILY (1/D)
     Route: 048
     Dates: end: 20081028
  9. ASPIRIN [Concomitant]
     Indication: PROPHYLAXIS
     Dosage: 100 MG, DAILY (1/D)
     Route: 048
     Dates: end: 20081028
  10. MEXITIL [Concomitant]
     Indication: PROPHYLAXIS
     Dosage: 200 MG, DAILY (1/D)
     Route: 048
     Dates: end: 20081028

REACTIONS (2)
  - GENERALISED OEDEMA [None]
  - PLEURAL EFFUSION [None]
